FAERS Safety Report 7355009-5 (Version None)
Quarter: 2011Q1

REPORT INFORMATION
  Report Type: 
  Country: None (occurrence: None)
  Receive Date: 20110316
  Receipt Date: 20110308
  Transmission Date: 20110831
  Serious: Yes (Death)
  Sender: FDA-Public Use
  Company Number: CH-SANOFI-AVENTIS-2011SA014358

PATIENT
  Age: 81 Year
  Sex: Female
  Weight: 104 kg

DRUGS (12)
  1. FLUIMUCIL [Concomitant]
     Route: 040
     Dates: start: 20110210, end: 20110210
  2. PERFALGAN [Concomitant]
     Route: 048
     Dates: end: 20110211
  3. PLAVIX [Suspect]
     Indication: ACUTE MYOCARDIAL INFARCTION
     Route: 048
     Dates: start: 20110207, end: 20110211
  4. PANTOZOL [Concomitant]
     Route: 040
     Dates: start: 20110207, end: 20110211
  5. TORASEMIDE [Suspect]
     Route: 040
     Dates: start: 20110207, end: 20110211
  6. CONCOR [Concomitant]
     Route: 048
     Dates: end: 20110211
  7. OFLOXACIN [Suspect]
     Indication: ERYSIPELAS
     Route: 048
     Dates: end: 20110206
  8. COVERSUM COMBI [Concomitant]
     Route: 048
     Dates: end: 20110211
  9. BELOC [Concomitant]
     Route: 048
     Dates: start: 20110209, end: 20110211
  10. INSULIN [Concomitant]
     Route: 058
     Dates: end: 20110211
  11. XENETIX [Suspect]
     Route: 040
     Dates: start: 20110208, end: 20110208
  12. ASPEGIC 325 [Concomitant]
     Route: 048
     Dates: end: 20110211

REACTIONS (1)
  - RENAL FAILURE ACUTE [None]
